FAERS Safety Report 7396595-9 (Version None)
Quarter: 2011Q2

REPORT INFORMATION
  Report Type: 
  Country: None (occurrence: None)
  Receive Date: 20110406
  Receipt Date: 20110324
  Transmission Date: 20111010
  Serious: Yes (Hospitalization, Other)
  Sender: FDA-Public Use
  Company Number: PHHY2011US24598

PATIENT
  Age: 48 Year
  Sex: Female
  Weight: 109 kg

DRUGS (8)
  1. METHYLPREDNISOLONE [Concomitant]
     Indication: PROPHYLAXIS AGAINST TRANSPLANT REJECTION
     Dosage: 1 G
     Dates: start: 20090914
  2. PROGRAF [Concomitant]
     Dosage: 6 MG
     Route: 048
     Dates: start: 20100514
  3. MYFORTIC [Suspect]
     Indication: PROPHYLAXIS AGAINST TRANSPLANT REJECTION
     Dosage: 250 MG
     Dates: start: 20090914, end: 20110301
  4. PROGRAF [Concomitant]
     Dosage: 2 MG
     Route: 048
  5. PROGRAF [Concomitant]
     Dosage: 4 MG
     Route: 048
  6. MYFORTIC [Suspect]
     Dosage: 360 MG
     Dates: start: 20100514
  7. PROGRAF [Concomitant]
     Indication: PROPHYLAXIS AGAINST TRANSPLANT REJECTION
     Dosage: 14 MG
     Route: 048
     Dates: start: 20090914
  8. METOPROLOL [Concomitant]
     Indication: HYPERTENSION
     Dosage: 100 MG
     Route: 048
     Dates: start: 20090912

REACTIONS (4)
  - ORAL HERPES [None]
  - OSTEOARTHRITIS [None]
  - URINARY TRACT INFECTION [None]
  - ABDOMINAL ABSCESS [None]
